FAERS Safety Report 7673391-6 (Version None)
Quarter: 2011Q3

REPORT INFORMATION
  Report Type: 
  Country: None (occurrence: None)
  Receive Date: 20110810
  Receipt Date: 20110803
  Transmission Date: 20111222
  Serious: Yes (Death, Life-Threatening, Other)
  Sender: FDA-Public Use
  Company Number: DE-JNJFOC-20110801225

PATIENT
  Age: 80 Year
  Sex: Female

DRUGS (8)
  1. PANTOPRAZOLE [Concomitant]
     Route: 048
     Dates: end: 20040916
  2. RISPERDAL [Suspect]
     Indication: PRODUCT USED FOR UNKNOWN INDICATION
     Route: 048
     Dates: start: 20040910, end: 20040916
  3. CIPROFLAXACIN [Concomitant]
     Route: 048
     Dates: start: 20040913, end: 20040916
  4. FOLSAN [Concomitant]
     Route: 048
     Dates: end: 20040916
  5. K CL TAB [Concomitant]
     Route: 048
     Dates: start: 20040910, end: 20040916
  6. VALORON [Concomitant]
     Route: 048
     Dates: end: 20040916
  7. MIRTAZAPINE [Concomitant]
     Route: 048
     Dates: end: 20040916
  8. MORPHINE SULFATE [Concomitant]
     Route: 048
     Dates: start: 20040916, end: 20040918

REACTIONS (3)
  - PULMONARY EMBOLISM [None]
  - PNEUMONIA [None]
  - GENERAL PHYSICAL HEALTH DETERIORATION [None]
